FAERS Safety Report 5305116-3 (Version None)
Quarter: 2007Q2

REPORT INFORMATION
  Report Type: 
  Country: None (occurrence: None)
  Receive Date: 20070417
  Receipt Date: 20070402
  Transmission Date: 20071010
  Serious: Yes (Other)
  Sender: FDA-Public Use
  Company Number: VNL_0283_2006

PATIENT
  Age: 70 Year
  Sex: Female
  Weight: 63.5036 kg

DRUGS (13)
  1. APOKYN [Suspect]
     Indication: PARKINSON'S DISEASE
     Dosage: 0.2 ML SC
     Route: 058
     Dates: start: 20061031, end: 20061031
  2. APOKYN [Suspect]
     Indication: PARKINSON'S DISEASE
     Dosage: 0.2 MG SC
     Route: 058
     Dates: start: 20061218
  3. COUMADIN [Concomitant]
  4. COMTAN [Concomitant]
  5. ARTANE [Concomitant]
  6. SINEMET [Concomitant]
  7. MEVACOR [Concomitant]
  8. PEPCID [Concomitant]
  9. BUSPAR [Concomitant]
  10. LISINOPRIL [Concomitant]
  11. INDAPAMIDE [Concomitant]
  12. IMIPRAMINE [Concomitant]
  13. ZOLOFT [Concomitant]

REACTIONS (8)
  - BLOOD PRESSURE SYSTOLIC INCREASED [None]
  - DRUG HYPERSENSITIVITY [None]
  - DRY MOUTH [None]
  - DYSGEUSIA [None]
  - DYSPNOEA [None]
  - PANIC ATTACK [None]
  - SWOLLEN TONGUE [None]
  - TONGUE DRY [None]
